FAERS Safety Report 9865282 (Version 1)
Quarter: 2014Q1

REPORT INFORMATION
  Report Type: Spontaneous
  Country: US (occurrence: US)
  Receive Date: 20140203
  Receipt Date: 20140203
  Transmission Date: 20141002
  Serious: No
  Sender: FDA-Public Use
  Company Number: US-ALLERGAN-1300662US

PATIENT
  Age: 59 Year
  Sex: Female

DRUGS (4)
  1. RESTASIS [Suspect]
     Indication: DRY EYE
     Dosage: 2 GTT, BID
     Route: 047
     Dates: start: 20120915
  2. SYNTHROID [Concomitant]
     Indication: HYPOTHYROIDISM
     Dosage: 0.112 MG, QD
     Route: 048
  3. VITAMINS [Concomitant]
     Indication: SUPPLEMENTATION THERAPY
     Dosage: UNK
  4. HIGH PERFORMANCE SYSTANE [Concomitant]
     Indication: DRY EYE
     Dosage: 2 GTT, TID
     Route: 047

REACTIONS (2)
  - Incorrect product storage [Unknown]
  - Eye irritation [Recovering/Resolving]
